FAERS Safety Report 6723878-5 (Version None)
Quarter: 2010Q2

REPORT INFORMATION
  Report Type: 
  Country: None (occurrence: None)
  Receive Date: 20100513
  Receipt Date: 20100510
  Transmission Date: 20101027
  Serious: Yes (Life-Threatening, Hospitalization)
  Sender: FDA-Public Use
  Company Number: AT-ASTRAZENECA-2010SE21098

PATIENT
  Age: 23 Year
  Sex: Male

DRUGS (7)
  1. SEROQUEL [Suspect]
     Route: 048
     Dates: start: 20100220, end: 20100221
  2. HALDOL [Suspect]
     Indication: PSYCHOTIC DISORDER
     Route: 030
     Dates: start: 20100217, end: 20100217
  3. ZYPREXA [Suspect]
     Route: 048
     Dates: start: 20100217, end: 20100223
  4. ZYPREXA [Suspect]
     Route: 048
     Dates: start: 20100223
  5. RISPERDAL [Suspect]
     Dates: start: 20100222, end: 20100322
  6. GEWACALM [Concomitant]
     Dates: start: 20100217, end: 20100217
  7. MARCUMAR [Concomitant]
     Dates: start: 20100308

REACTIONS (3)
  - PNEUMONIA [None]
  - PULMONARY EMBOLISM [None]
  - THROMBOPHLEBITIS SUPERFICIAL [None]
